FAERS Safety Report 4892427-9 (Version None)
Quarter: 2006Q1

REPORT INFORMATION
  Report Type: 
  Country: None (occurrence: None)
  Receive Date: 20060126
  Receipt Date: 20060117
  Transmission Date: 20060701
  Serious: Yes (Other)
  Sender: FDA-Public Use
  Company Number: PHBS2006SG01000

PATIENT
  Age: 38 Year
  Sex: Female

DRUGS (4)
  1. CLOZAPINE [Suspect]
     Indication: PSYCHOTIC DISORDER
     Dosage: 350 MG/D
     Route: 065
     Dates: start: 19960101, end: 20041201
  2. VALPROATE SODIUM [Concomitant]
     Route: 065
  3. BENZHEXOL [Concomitant]
     Dosage: 6 MG/D
     Route: 065
  4. LORAZEPAM [Concomitant]
     Dosage: 3 MG/D
     Route: 065

REACTIONS (14)
  - ABDOMINAL DISTENSION [None]
  - CLOSTRIDIUM COLITIS [None]
  - COLECTOMY [None]
  - DIARRHOEA [None]
  - ELECTROENCEPHALOGRAM ABNORMAL [None]
  - FAECES DISCOLOURED [None]
  - FIBRIN ABNORMAL [None]
  - GRAND MAL CONVULSION [None]
  - HAEMOGLOBIN DECREASED [None]
  - HYPOTENSION [None]
  - ILEUS [None]
  - INTESTINAL ANASTOMOSIS [None]
  - MUCOSAL EROSION [None]
  - NECROSIS [None]
